APPROVED DRUG PRODUCT: POTASSIUM CHLORIDE 10MEQ IN DEXTROSE 5% AND LACTATED RINGER'S IN PLASTIC CONTAINER
Active Ingredient: CALCIUM CHLORIDE; DEXTROSE; POTASSIUM CHLORIDE; SODIUM CHLORIDE; SODIUM LACTATE
Strength: 20MG/100ML;5GM/100ML;179MG/100ML;600MG/100ML;310MG/100ML
Dosage Form/Route: INJECTABLE;INJECTION
Application: N019367 | Product #003
Applicant: BAXTER HEALTHCARE CORP
Approved: Apr 5, 1985 | RLD: No | RS: No | Type: RX